FAERS Safety Report 9844368 (Version 2)
Quarter: 2014Q2

REPORT INFORMATION
  Report Type: Report from Study
  Country: CA (occurrence: CA)
  Receive Date: 20140127
  Receipt Date: 20140522
  Transmission Date: 20141212
  Serious: Yes (Death)
  Sender: FDA-Public Use
  Company Number: PHHY2014CA008961

PATIENT
  Age: 35 Year
  Sex: Male

DRUGS (6)
  1. CLOZARIL [Suspect]
     Indication: SCHIZOPHRENIA
     Dosage: 900 MG, PER DAY
     Route: 048
     Dates: start: 20070629
  2. PROPRANOLOL [Concomitant]
     Dosage: 20 MG, TID
  3. LORAZEPAM [Concomitant]
     Dosage: 4 MG, QD
  4. DOCUSATE [Concomitant]
     Dosage: UNK
  5. PANTOPRAZOLE [Concomitant]
     Dosage: 40 MG/DAY
  6. OMEGA 3 [Concomitant]
     Dosage: UNK

REACTIONS (1)
  - Death [Fatal]
